FAERS Safety Report 7514875-0 (Version None)
Quarter: 2011Q2

REPORT INFORMATION
  Report Type: 
  Country: None (occurrence: None)
  Receive Date: 20110526
  Receipt Date: 20110526
  Transmission Date: 20111010
  Serious: Yes (Hospitalization)
  Sender: FDA-Public Use
  Company Number: None

PATIENT
  Sex: Female
  Weight: 44.6 kg

DRUGS (1)
  1. VINCRISTINE [Suspect]
     Dosage: 3 MG

REACTIONS (2)
  - PANCREATITIS [None]
  - PERIPHERAL SENSORIMOTOR NEUROPATHY [None]
